FAERS Safety Report 5709557-1 (Version None)
Quarter: 2008Q2

REPORT INFORMATION
  Report Type: 
  Country: None (occurrence: None)
  Receive Date: 20080418
  Receipt Date: 20080409
  Transmission Date: 20081010
  Serious: Yes (Other)
  Sender: FDA-Public Use
  Company Number: US-MERCK-0804USA02198

PATIENT
  Age: 61 Year
  Sex: Male

DRUGS (1)
  1. ZOCOR [Suspect]
     Route: 048

REACTIONS (48)
  - ABDOMINAL DISCOMFORT [None]
  - ARTHRALGIA [None]
  - BACK PAIN [None]
  - BALANCE DISORDER [None]
  - BLOOD CREATININE INCREASED [None]
  - BLOOD URINE PRESENT [None]
  - BONE DISORDER [None]
  - CHRONIC SINUSITIS [None]
  - CONSTIPATION [None]
  - DEAFNESS NEUROSENSORY [None]
  - DELUSIONAL DISORDER, PERSECUTORY TYPE [None]
  - DERMAL CYST [None]
  - EAR INJURY [None]
  - EMOTIONAL DISTRESS [None]
  - ERECTILE DYSFUNCTION [None]
  - FALL [None]
  - GASTROOESOPHAGEAL REFLUX DISEASE [None]
  - HAEMATURIA [None]
  - HAEMORRHAGE [None]
  - HYPERLIPIDAEMIA [None]
  - HYPERTENSION [None]
  - HYPOTHYROIDISM [None]
  - JOINT SPRAIN [None]
  - LIMB DISCOMFORT [None]
  - LIVER DISORDER [None]
  - MUSCLE STRAIN [None]
  - NASAL SEPTUM DEVIATION [None]
  - NEOPLASM MALIGNANT [None]
  - NEPHROLITHIASIS [None]
  - NIGHTMARE [None]
  - NODULE [None]
  - ONYCHOMYCOSIS [None]
  - OSTEOARTHRITIS [None]
  - OSTEOPENIA [None]
  - OTITIS EXTERNA [None]
  - PAIN [None]
  - PLANTAR FASCIITIS [None]
  - POLYP [None]
  - PROTEINURIA [None]
  - RENAL CELL CARCINOMA [None]
  - RENAL CYST [None]
  - RENAL DISORDER [None]
  - RENAL FAILURE CHRONIC [None]
  - RHINITIS ALLERGIC [None]
  - SINUS POLYP [None]
  - SPINAL OSTEOARTHRITIS [None]
  - STERNAL INJURY [None]
  - TENOSYNOVITIS [None]
